FAERS Safety Report 8556408-6 (Version None)
Quarter: 2012Q3

REPORT INFORMATION
  Report Type: 
  Country: None (occurrence: None)
  Receive Date: 20120801
  Receipt Date: 20120726
  Transmission Date: 20120928
  Serious: Yes (Other)
  Sender: FDA-Public Use
  Company Number: PHEH2010US00483

PATIENT
  Sex: Female

DRUGS (27)
  1. ATIVAN [Concomitant]
  2. ONDANSETRON [Concomitant]
  3. REGLAN [Concomitant]
  4. HYDROCORTISONE [Concomitant]
  5. WARFARIN [Concomitant]
     Dosage: 2.5 MG, QD
  6. LASIX [Concomitant]
     Dosage: 20 MG, PRN
     Route: 048
  7. ROSIGLITAZONE MALEATE [Concomitant]
     Dosage: 4 MG, QD
     Route: 048
  8. DEMEROL [Concomitant]
  9. LOPRESSOR [Concomitant]
  10. FEMARA [Concomitant]
     Dosage: 2.5 MG, DAILY
  11. PERCOCET [Concomitant]
  12. FULVESTRANT [Concomitant]
  13. LOVENOX [Concomitant]
     Dosage: 60 MG, BID
     Route: 048
  14. COUMADIN [Concomitant]
     Dosage: 1.25 MG, QD
     Route: 048
  15. MORPHINE SULFATE [Concomitant]
  16. ASPIRIN [Concomitant]
  17. AMBIEN [Concomitant]
  18. IBUPROFEN [Concomitant]
  19. LISINOPRIL [Concomitant]
  20. FISH OIL [Concomitant]
  21. NEURONTIN [Concomitant]
     Dosage: 1 DF, BID
     Route: 048
  22. ZOMETA [Suspect]
     Dosage: 4 MG
     Route: 042
  23. METFORMIN HYDROCHLORIDE [Concomitant]
  24. LANTUS [Concomitant]
  25. FASLODEX [Concomitant]
  26. MINOCYCLINE HCL [Concomitant]
     Dosage: 100 MG, BID
     Route: 048
  27. PRILOSEC [Concomitant]
     Dosage: 20 MG, QD

REACTIONS (69)
  - OSTEOMYELITIS [None]
  - NEOPLASM MALIGNANT [None]
  - PATHOLOGICAL FRACTURE [None]
  - MUSCULOSKELETAL DISCOMFORT [None]
  - DIASTOLIC DYSFUNCTION [None]
  - GENERAL PHYSICAL HEALTH DETERIORATION [None]
  - PAIN [None]
  - ANXIETY [None]
  - INTERVERTEBRAL DISC SPACE NARROWING [None]
  - CARDIAC FAILURE CONGESTIVE [None]
  - AORTIC CALCIFICATION [None]
  - LEUKOPENIA [None]
  - CONFUSIONAL STATE [None]
  - HYPOAESTHESIA [None]
  - INSOMNIA [None]
  - BREAST PROSTHESIS USER [None]
  - PNEUMONIA [None]
  - BONE LESION [None]
  - VOMITING [None]
  - OSTEONECROSIS OF JAW [None]
  - METASTASES TO BONE [None]
  - METASTASES TO LIVER [None]
  - SUBCUTANEOUS ABSCESS [None]
  - INTERVERTEBRAL DISC PROTRUSION [None]
  - BACK PAIN [None]
  - AXILLARY MASS [None]
  - PULMONARY EMBOLISM [None]
  - VOCAL CORD DISORDER [None]
  - VISION BLURRED [None]
  - IMPAIRED HEALING [None]
  - HYPERTENSION [None]
  - NEOPLASM PROGRESSION [None]
  - COMPRESSION FRACTURE [None]
  - PROTHROMBIN TIME PROLONGED [None]
  - INTERVERTEBRAL DISC DEGENERATION [None]
  - PLEURAL EFFUSION [None]
  - ATELECTASIS [None]
  - AORTIC ARTERIOSCLEROSIS [None]
  - ANAEMIA [None]
  - DIARRHOEA [None]
  - DIZZINESS [None]
  - CONSTIPATION [None]
  - DECREASED INTEREST [None]
  - SPINAL OSTEOARTHRITIS [None]
  - ORAL DISORDER [None]
  - CHEST PAIN [None]
  - PULMONARY OEDEMA [None]
  - VOCAL CORD PARALYSIS [None]
  - UTERINE ATROPHY [None]
  - NAUSEA [None]
  - TOOTHACHE [None]
  - DIABETES MELLITUS [None]
  - METASTASES TO LUNG [None]
  - ABSCESS [None]
  - HAEMATOMA [None]
  - MITRAL VALVE INCOMPETENCE [None]
  - HYPOXIA [None]
  - DYSPNOEA [None]
  - CYSTITIS [None]
  - PHARYNGITIS [None]
  - DEAFNESS [None]
  - GAIT DISTURBANCE [None]
  - SINUS DISORDER [None]
  - POLYURIA [None]
  - LUNG NEOPLASM [None]
  - AORTIC VALVE INCOMPETENCE [None]
  - DYSPHONIA [None]
  - HYPOKALAEMIA [None]
  - WOUND [None]
